FAERS Safety Report 14583072 (Version 2)
Quarter: 2018Q1

REPORT INFORMATION
  Report Type: Spontaneous
  Country: US (occurrence: US)
  Receive Date: 20180228
  Receipt Date: 20180309
  Transmission Date: 20180509
  Serious: Yes (Hospitalization)
  Sender: FDA-Public Use
  Company Number: US-BRACCO-2018US00918

PATIENT
  Age: 60 Year
  Sex: Female

DRUGS (1)
  1. ISOVUE 300 [Suspect]
     Active Substance: IOPAMIDOL
     Indication: COMPUTERISED TOMOGRAM HEAD
     Dosage: 75 ML, SINGLE
     Route: 042
     Dates: start: 20180201, end: 20180201

REACTIONS (1)
  - Anaphylactic reaction [Recovered/Resolved]

NARRATIVE: CASE EVENT DATE: 20180201
